FAERS Safety Report 4912287-7 (Version None)
Quarter: 2006Q1

REPORT INFORMATION
  Report Type: 
  Country: None (occurrence: None)
  Receive Date: 20060215
  Receipt Date: 20051220
  Transmission Date: 20060701
  Serious: No
  Sender: FDA-Public Use
  Company Number: US-GLAXOSMITHKLINE-A0586863A

PATIENT
  Sex: Female

DRUGS (1)
  1. VALTREX [Suspect]

REACTIONS (1)
  - DRUG INEFFECTIVE [None]
